FAERS Safety Report 18164085 (Version 2)
Quarter: 2020Q3

REPORT INFORMATION
  Report Type: Spontaneous
  Country: US (occurrence: US)
  Receive Date: 20200818
  Receipt Date: 20200818
  Transmission Date: 20201103
  Serious: No
  Sender: FDA-Public Use
  Company Number: US-OTSUKA-2019_025247

PATIENT
  Sex: Male

DRUGS (2)
  1. ABILIFY MAINTENA [Suspect]
     Active Substance: ARIPIPRAZOLE
     Indication: PRODUCT USED FOR UNKNOWN INDICATION
     Dosage: UNK
     Route: 065
  2. ABILIFY MAINTENA [Suspect]
     Active Substance: ARIPIPRAZOLE
     Dosage: 200 MG, UNK
     Route: 065

REACTIONS (4)
  - Refusal of treatment by patient [Unknown]
  - Prescribed underdose [Unknown]
  - No adverse event [Unknown]
  - Product preparation error [Unknown]

NARRATIVE: CASE EVENT DATE: 20190702
